FAERS Safety Report 4371747-0 (Version None)
Quarter: 2004Q2

REPORT INFORMATION
  Report Type: 
  Country: None (occurrence: None)
  Receive Date: 20040604
  Receipt Date: 20040604
  Transmission Date: 20050107
  Serious: Yes (Disabling)
  Sender: FDA-Public Use
  Company Number: None

PATIENT
  Age: 20 Year
  Sex: Female
  Weight: 86.1834 kg

DRUGS (10)
  1. PAXIL [Suspect]
     Indication: AGORAPHOBIA
     Dosage: 30 MG DAILY ORAL
     Route: 048
     Dates: start: 19930101, end: 19980301
  2. PAXIL [Suspect]
     Indication: DEPRESSION
     Dosage: 30 MG DAILY ORAL
     Route: 048
     Dates: start: 19930101, end: 19980301
  3. PAXIL [Suspect]
     Indication: POST-TRAUMATIC STRESS DISORDER
     Dosage: 30 MG DAILY ORAL
     Route: 048
     Dates: start: 19930101, end: 19980301
  4. PAXIL [Suspect]
     Indication: AGORAPHOBIA
     Dosage: 30 MG DAILY ORAL
     Route: 048
     Dates: start: 19990301, end: 20030901
  5. PAXIL [Suspect]
     Indication: DEPRESSION
     Dosage: 30 MG DAILY ORAL
     Route: 048
     Dates: start: 19990301, end: 20030901
  6. PAXIL [Suspect]
     Indication: POST-TRAUMATIC STRESS DISORDER
     Dosage: 30 MG DAILY ORAL
     Route: 048
     Dates: start: 19990301, end: 20030901
  7. BIRTH CONTROL PILLS [Concomitant]
  8. ALLERGY PILLS [Concomitant]
  9. NASAL SPRAY FOR ALLERGIES [Concomitant]
  10. ASTHMA INHAILERS [Concomitant]

REACTIONS (19)
  - CONDITION AGGRAVATED [None]
  - CONSTIPATION [None]
  - DEPRESSION [None]
  - DIZZINESS [None]
  - DRUG INEFFECTIVE [None]
  - FALL [None]
  - FORMICATION [None]
  - HALLUCINATION, VISUAL [None]
  - IMPAIRED DRIVING ABILITY [None]
  - INSOMNIA [None]
  - MEMORY IMPAIRMENT [None]
  - NAUSEA [None]
  - NIGHTMARE [None]
  - PARAESTHESIA [None]
  - SEXUAL DYSFUNCTION [None]
  - SLEEP APNOEA SYNDROME [None]
  - VERTIGO [None]
  - VISUAL DISTURBANCE [None]
  - WEIGHT INCREASED [None]
